FAERS Safety Report 11539527 (Version 3)
Quarter: 2015Q4

REPORT INFORMATION
  Report Type: Spontaneous
  Country: IT (occurrence: IT)
  Receive Date: 20150923
  Receipt Date: 20151014
  Transmission Date: 20160304
  Serious: Yes (Other)
  Sender: FDA-Public Use
  Company Number: IT-WATSON-2015-19777

PATIENT
  Age: 26 Year
  Sex: Female

DRUGS (2)
  1. CEFTRIAXONE (UNKNOWN) [Suspect]
     Active Substance: CEFTRIAXONE
     Indication: EAR INFECTION
     Dosage: 1 DF, DAILY
     Route: 030
     Dates: start: 20150806, end: 20150807
  2. CIPROFLOXACIN HYDROCHLORIDE. [Suspect]
     Active Substance: CIPROFLOXACIN HYDROCHLORIDE
     Indication: EAR INFECTION
     Dosage: 1 DF, DAILY
     Route: 048
     Dates: start: 20150806, end: 20150807

REACTIONS (3)
  - Urticaria [Unknown]
  - Eyelid oedema [Unknown]
  - Hypersensitivity [Unknown]

NARRATIVE: CASE EVENT DATE: 20150807
